FAERS Safety Report 5670466-8 (Version None)
Quarter: 2008Q1

REPORT INFORMATION
  Report Type: 
  Country: None (occurrence: None)
  Receive Date: 20080318
  Receipt Date: 20080305
  Transmission Date: 20080703
  Serious: Yes (Other)
  Sender: FDA-Public Use
  Company Number: BR-ELI_LILLY_AND_COMPANY-BR200803001145

PATIENT
  Sex: Female
  Weight: 70 kg

DRUGS (8)
  1. FORTEO [Suspect]
     Indication: OSTEOPOROSIS
     Dosage: 20 UG, DAILY (1/D)
     Route: 058
     Dates: start: 20071201
  2. PREDNISONE TAB [Concomitant]
     Dosage: 20 MG, UNKNOWN
     Route: 065
  3. CAPTOPRIL [Concomitant]
     Dosage: 20 MG, UNKNOWN
     Route: 065
  4. HYDROCHLOROTHIAZIDE [Concomitant]
     Dosage: 25 MG, UNKNOWN
     Route: 065
  5. METOTREXATO [Concomitant]
     Dosage: 22.5 MG, UNKNOWN
     Route: 065
  6. FLUOXETINA [Concomitant]
     Dosage: 20 MG, UNKNOWN
     Route: 065
  7. ALENDRONATE SODIUM [Concomitant]
     Dosage: 70 MG, UNKNOWN
     Route: 065
  8. AMITRIPTYLINE HCL [Concomitant]
     Dosage: 25 MG, UNKNOWN
     Route: 065

REACTIONS (4)
  - ABDOMINAL PAIN [None]
  - DIARRHOEA [None]
  - INFECTION [None]
  - VIRAL INFECTION [None]
